FAERS Safety Report 20376700 (Version 1)
Quarter: 2022Q1

REPORT INFORMATION
  Report Type: Spontaneous
  Country: US (occurrence: US)
  Receive Date: 20220125
  Receipt Date: 20220125
  Transmission Date: 20220424
  Serious: Yes (Other)
  Sender: FDA-Public Use
  Company Number: US-AMGEN-USASP2022007679

PATIENT
  Age: 58 Year
  Sex: Female

DRUGS (2)
  1. ENBREL [Suspect]
     Active Substance: ETANERCEPT
     Indication: Arthritis
     Dosage: UNK
     Route: 065
  2. XELJANZ XR [Suspect]
     Active Substance: TOFACITINIB CITRATE
     Dosage: 11 MILLIGRAM
     Route: 065

REACTIONS (7)
  - Neoplasm malignant [Unknown]
  - Drug ineffective for unapproved indication [Unknown]
  - Finger deformity [Unknown]
  - Foot deformity [Unknown]
  - Hand deformity [Unknown]
  - Off label use [Unknown]
  - Arthralgia [Unknown]
